FAERS Safety Report 11796414 (Version 1)
Quarter: 2015Q4

REPORT INFORMATION
  Report Type: Spontaneous
  Country: PK (occurrence: PK)
  Receive Date: 20151203
  Receipt Date: 20151203
  Transmission Date: 20160305
  Serious: Yes (Other)
  Sender: FDA-Public Use
  Company Number: PK-NOVOPROD-471577

PATIENT
  Age: 68 Year
  Sex: Male
  Weight: 76 kg

DRUGS (5)
  1. DESCOL [Concomitant]
     Dosage: 6 MG, QD
  2. METOPROLOL [Concomitant]
     Active Substance: METOPROLOL
     Dosage: 450 MG, QD
  3. SARTAN [Concomitant]
     Dosage: 75 MG, QD
  4. ASCARD [Concomitant]
     Dosage: 75 MG, QD
  5. NOVOMIX 30 FLEXPEN [Suspect]
     Active Substance: INSULIN ASPART
     Indication: TYPE 2 DIABETES MELLITUS
     Dosage: 60 U, QD (20 UNITS IN MORNING, 20 UNITS IN EVENING, 20 UNITS AT NIGHT)
     Route: 065
     Dates: start: 201306

REACTIONS (5)
  - Lethargy [Not Recovered/Not Resolved]
  - Diabetes mellitus inadequate control [Not Recovered/Not Resolved]
  - Myalgia [Not Recovered/Not Resolved]
  - Pyrexia [Not Recovered/Not Resolved]
  - Hypoglycaemia [Not Recovered/Not Resolved]

NARRATIVE: CASE EVENT DATE: 20151120
